FAERS Safety Report 17750156 (Version 1)
Quarter: 2020Q2

REPORT INFORMATION
  Report Type: Spontaneous
  Country: SE (occurrence: SE)
  Receive Date: 20200506
  Receipt Date: 20200506
  Transmission Date: 20200714
  Serious: Yes (Hospitalization)
  Sender: FDA-Public Use
  Company Number: SE-ACCORD-180870

PATIENT
  Age: 16 Year
  Sex: Female

DRUGS (3)
  1. PLAQUENIL [Suspect]
     Active Substance: HYDROXYCHLOROQUINE SULFATE
     Dosage: 10-15 ST, INTENTIONAL OVERDOSE
     Route: 048
     Dates: start: 20200213, end: 20200213
  2. PREDNISOLONE. [Suspect]
     Active Substance: PREDNISOLONE
     Dosage: 10-15 ST, INTENTIONAL OVERDOSE
     Route: 048
     Dates: start: 20200213, end: 20200213
  3. SERTRALINE [Suspect]
     Active Substance: SERTRALINE HYDROCHLORIDE
     Dosage: INTENTIONAL OVERDOSE
     Route: 048
     Dates: start: 20200213, end: 20200213

REACTIONS (6)
  - Fatigue [Unknown]
  - Intentional overdose [Unknown]
  - Balance disorder [Unknown]
  - Intentional self-injury [Unknown]
  - Tachycardia [Unknown]
  - Somnolence [Unknown]

NARRATIVE: CASE EVENT DATE: 20200213
